FAERS Safety Report 10157092 (Version 5)
Quarter: 2015Q2

REPORT INFORMATION
  Report Type: Spontaneous
  Country: US (occurrence: US)
  Receive Date: 20140507
  Receipt Date: 20150617
  Transmission Date: 20150821
  Serious: Yes (Death, Life-Threatening, Hospitalization, Other)
  Sender: FDA-Public Use
  Company Number: US-009507513-1405USA002873

PATIENT
  Sex: Female
  Weight: 59.86 kg

DRUGS (4)
  1. JANUVIA [Suspect]
     Active Substance: SITAGLIPTIN PHOSPHATE
     Dosage: 50 MG, QD
     Route: 048
     Dates: start: 20090213
  2. BYETTA [Suspect]
     Active Substance: EXENATIDE
     Indication: TYPE 2 DIABETES MELLITUS
     Dosage: 5 MICROGRAM, BID
     Dates: start: 20050906, end: 20051006
  3. BYETTA [Suspect]
     Active Substance: EXENATIDE
     Dosage: 10 MICROGRAM, BID
     Dates: start: 20060213, end: 20060514
  4. JANUVIA [Suspect]
     Active Substance: SITAGLIPTIN PHOSPHATE
     Indication: TYPE 2 DIABETES MELLITUS
     Dosage: 100 MG, QD
     Route: 048
     Dates: start: 20061212, end: 20081202

REACTIONS (42)
  - Hepatitis [Unknown]
  - Hypoacusis [Unknown]
  - Chronic kidney disease [Not Recovered/Not Resolved]
  - Hypercholesterolaemia [Unknown]
  - Proteinuria [Unknown]
  - Herpes zoster [Unknown]
  - Insomnia [Unknown]
  - Osteoporosis [Unknown]
  - Cholecystectomy [Unknown]
  - Varicose vein operation [Unknown]
  - Pancreatic insufficiency [Unknown]
  - Hot flush [Unknown]
  - Mucinous cystadenocarcinoma of pancreas [Fatal]
  - Bile duct obstruction [Unknown]
  - Bile duct stent insertion [Unknown]
  - Gastrointestinal disorder [Unknown]
  - Bile duct stent insertion [Unknown]
  - Bundle branch block left [Unknown]
  - Lumbar spinal stenosis [Unknown]
  - Visual acuity reduced [Unknown]
  - Hyperparathyroidism secondary [Unknown]
  - Hypothyroidism [Unknown]
  - Bile duct stent removal [Unknown]
  - Cataract operation [Unknown]
  - Gout [Unknown]
  - Oedema peripheral [Unknown]
  - Nephrolithiasis [Unknown]
  - Emphysema [Unknown]
  - Kyphosis [Unknown]
  - Dizziness [Unknown]
  - Headache [Unknown]
  - Hypertension [Unknown]
  - Hyperthyroidism [Unknown]
  - Hypotension [Unknown]
  - Hypokalaemia [Unknown]
  - Vitamin D deficiency [Unknown]
  - Hernia [Unknown]
  - Renal cyst [Unknown]
  - Osteoarthritis [Unknown]
  - Diarrhoea [Unknown]
  - Restless legs syndrome [Unknown]
  - Back pain [Unknown]

NARRATIVE: CASE EVENT DATE: 200806
